FAERS Safety Report 4374436-1 (Version None)
Quarter: 2004Q2

REPORT INFORMATION
  Report Type: 
  Country: None (occurrence: None)
  Receive Date: 20040609
  Receipt Date: 20040609
  Transmission Date: 20050107
  Serious: Yes (Hospitalization)
  Sender: FDA-Public Use
  Company Number: None

PATIENT
  Sex: Male

DRUGS (9)
  1. THYMOGLOBULIN [Suspect]
     Indication: TRANSPLANT REJECTION
     Dosage: 150 MG IV ONCE
     Route: 042
     Dates: start: 20040330, end: 20040404
  2. LIPITOR [Concomitant]
  3. LANSOPRAZOLE [Concomitant]
  4. VALCYTE [Concomitant]
  5. PREDNISONE [Concomitant]
  6. TACROLIMUS [Concomitant]
  7. ASPIRIN [Concomitant]
  8. APAP TAB [Concomitant]
  9. DOCUSATE [Concomitant]

REACTIONS (4)
  - ASTHENIA [None]
  - BLOOD PRESSURE DECREASED [None]
  - DIZZINESS [None]
  - RASH [None]
